FAERS Safety Report 8552587-5 (Version None)
Quarter: 2012Q3

REPORT INFORMATION
  Report Type: 
  Country: None (occurrence: None)
  Receive Date: 20120731
  Receipt Date: 20120717
  Transmission Date: 20120928
  Serious: Yes (Hospitalization)
  Sender: FDA-Public Use
  Company Number: US-MYLANLABS-2012S1014700

PATIENT
  Age: 44 Year
  Sex: Female

DRUGS (4)
  1. CLOZAPINE [Interacting]
     Dosage: DOSE TITRATED UPWARD DUE TO PERSISTENT PSYCHOTIC SYMPTOMS
     Route: 065
  2. CLOZAPINE [Interacting]
     Route: 065
  3. OLANZAPINE [Concomitant]
     Route: 065
  4. LAMOTRIGINE [Suspect]
     Dosage: DOSE TITRATED UPWARD DUE TO PERSISTENT PSYCHOTIC SYMPTOMS
     Route: 065

REACTIONS (4)
  - NEUROLEPTIC MALIGNANT SYNDROME [None]
  - AGRANULOCYTOSIS [None]
  - RASH [None]
  - DRUG INTERACTION [None]
